FAERS Safety Report 6970012-2 (Version None)
Quarter: 2010Q3

REPORT INFORMATION
  Report Type: 
  Country: None (occurrence: None)
  Receive Date: 20100823
  Receipt Date: 20100618
  Transmission Date: 20110219
  Serious: No
  Sender: FDA-Public Use
  Company Number: 014558

PATIENT
  Sex: Female
  Weight: 57 kg

DRUGS (8)
  1. CIMZIA [Suspect]
     Indication: RHEUMATOID ARTHRITIS
     Dosage: (SUBCUTANEOUS)
     Route: 058
     Dates: start: 20100531
  2. CELEBREX [Concomitant]
  3. LEFLUNOMIDE [Concomitant]
  4. HYDROCHLOROTHIAZIDE [Concomitant]
  5. ACTIVELLA /00686201/ [Concomitant]
  6. PROTONIX [Concomitant]
  7. FOLIC ACID [Concomitant]
  8. EVOXAC [Concomitant]

REACTIONS (2)
  - PAIN IN EXTREMITY [None]
  - PARAESTHESIA [None]
